FAERS Safety Report 14636482 (Version 2)
Quarter: 2018Q1

REPORT INFORMATION
  Report Type: Spontaneous
  Country: US (occurrence: US)
  Receive Date: 20180314
  Receipt Date: 20180322
  Transmission Date: 20180509
  Serious: Yes (Other)
  Sender: FDA-Public Use
  Company Number: US-PFIZER INC-2018098244

PATIENT
  Age: 31 Year
  Sex: Male

DRUGS (1)
  1. SILDENAFIL CITRATE. [Suspect]
     Active Substance: SILDENAFIL CITRATE
     Dosage: UNK (LIQUID)
     Route: 048

REACTIONS (3)
  - Overdose [Unknown]
  - Retinal toxicity [Recovering/Resolving]
  - Suspected counterfeit product [Unknown]
